FAERS Safety Report 6129363-6 (Version None)
Quarter: 2009Q1

REPORT INFORMATION
  Report Type: 
  Country: None (occurrence: None)
  Receive Date: 20090324
  Receipt Date: 20090324
  Transmission Date: 20090719
  Serious: Yes (Other)
  Sender: FDA-Public Use
  Company Number: PHHO2005IT14518

PATIENT
  Sex: Female
  Weight: 74 kg

DRUGS (3)
  1. CGS 20267 T30748+ [Suspect]
     Indication: BREAST CANCER
     Dosage: 2.5 MG, QD
     Route: 048
     Dates: start: 20020610, end: 20050814
  2. CGS 20267 T30748+ [Suspect]
     Route: 048
     Dates: start: 20051031
  3. ACESISTEM [Concomitant]
     Indication: HYPERTENSION

REACTIONS (2)
  - PHLEBITIS [None]
  - VARICOSE VEIN [None]
